FAERS Safety Report 20149589 (Version 1)
Quarter: 2021Q4

REPORT INFORMATION
  Report Type: Spontaneous
  Country: CA (occurrence: None)
  Receive Date: 20211205
  Receipt Date: 20211205
  Transmission Date: 20220303
  Serious: Yes (Hospitalization)
  Sender: FDA-Public Use
  Company Number: CA-ROCHE-2968940

PATIENT
  Age: 59 Year
  Sex: Female
  Weight: 77 kg

DRUGS (8)
  1. RITUXIMAB [Suspect]
     Active Substance: RITUXIMAB
     Indication: Waldenstrom^s macroglobulinaemia
     Dosage: SINGLE USE VIALS
     Route: 042
  2. LORAZEPAM [Concomitant]
     Active Substance: LORAZEPAM
  3. BENDAMUSTINE [Concomitant]
     Active Substance: BENDAMUSTINE
  4. COVID-19 VACCINE NOS [Concomitant]
     Active Substance: COVID-19 VACCINE NOS
  5. POLYETHYLENE GLYCOL 3350 [Concomitant]
     Active Substance: POLYETHYLENE GLYCOL 3350
     Route: 048
  6. PROCHLORPERAZINE [Concomitant]
     Active Substance: PROCHLORPERAZINE
  7. VENLAFAXINE HYDROCHLORIDE [Concomitant]
     Active Substance: VENLAFAXINE HYDROCHLORIDE
  8. ELAVIL [Concomitant]
     Active Substance: AMITRIPTYLINE HYDROCHLORIDE

REACTIONS (6)
  - Arthralgia [Unknown]
  - Cough [Unknown]
  - Headache [Unknown]
  - Pyrexia [Unknown]
  - Rash [Unknown]
  - Serum sickness [Unknown]
